FAERS Safety Report 14738013 (Version 2)
Quarter: 2018Q2

REPORT INFORMATION
  Report Type: Report from Study
  Country: JP (occurrence: JP)
  Receive Date: 20180409
  Receipt Date: 20180413
  Transmission Date: 20180711
  Serious: Yes (Life-Threatening, Hospitalization, Other)
  Sender: FDA-Public Use
  Company Number: JP-AMGEN-JPNCT2017192511

PATIENT
  Age: 64 Year
  Sex: Male
  Weight: 65 kg

DRUGS (18)
  1. PANITUMUMAB [Suspect]
     Active Substance: PANITUMUMAB
     Dosage: 4.8 MG/KG, UNK
     Route: 041
     Dates: start: 20170301, end: 20170301
  2. OXALIPLATIN. [Concomitant]
     Active Substance: OXALIPLATIN
     Indication: COLON CANCER
     Dosage: 140 MG, Q2WEEKS
     Route: 041
     Dates: start: 20161116, end: 20170517
  3. CALCIUM LEVOFOLINATE [Concomitant]
     Active Substance: LEVOLEUCOVORIN CALCIUM
     Indication: COLON CANCER
     Dosage: 350 MG, Q2WEEKS
     Route: 041
     Dates: start: 20161116, end: 20170315
  4. GLIMEPIRIDE. [Concomitant]
     Active Substance: GLIMEPIRIDE
     Dosage: UNK UNK, QD
     Route: 048
  5. FLUOROURACIL. [Concomitant]
     Active Substance: FLUOROURACIL
     Dosage: 2000 MG/M2, Q2WEEKS
     Route: 041
     Dates: start: 20170329, end: 20171122
  6. SITAGLIPTIN PHOSPHATE MONOHYDRATE [Concomitant]
     Active Substance: SITAGLIPTIN PHOSPHATE
     Indication: DIABETES MELLITUS
     Dosage: UNK UNK, QD
     Route: 048
  7. ORENGEDOKUTO [Suspect]
     Active Substance: HERBALS
     Indication: DERMATITIS
  8. TADALAFIL [Concomitant]
     Active Substance: TADALAFIL
     Indication: BENIGN PROSTATIC HYPERPLASIA
     Dosage: UNK UNK, QD
     Route: 048
  9. PANITUMUMAB [Suspect]
     Active Substance: PANITUMUMAB
     Dosage: 3.6 MG/KG, UNK
     Route: 041
     Dates: start: 20170726, end: 20171108
  10. CALCIUM LEVOFOLINATE [Concomitant]
     Active Substance: LEVOLEUCOVORIN CALCIUM
     Indication: RECTOSIGMOID CANCER
     Dosage: UNK UNK, Q2WEEKS
     Route: 041
     Dates: start: 20170329, end: 20171122
  11. FLUOROURACIL. [Concomitant]
     Active Substance: FLUOROURACIL
     Indication: COLON CANCER
     Dosage: 700 MG, Q2WK
     Route: 040
     Dates: start: 20161116, end: 20170315
  12. FLUOROURACIL. [Concomitant]
     Active Substance: FLUOROURACIL
     Dosage: 200 MG/M2, Q2WK
     Route: 040
     Dates: start: 20170329, end: 20171122
  13. GLIMEPIRIDE. [Concomitant]
     Active Substance: GLIMEPIRIDE
     Indication: DIABETES MELLITUS
     Dosage: UNK, QD
     Route: 048
  14. ORENGEDOKUTO [Suspect]
     Active Substance: HERBALS
     Indication: STOMATITIS
     Dosage: UNK, TID
     Route: 048
     Dates: start: 20171124, end: 20171213
  15. OXALIPLATIN. [Concomitant]
     Active Substance: OXALIPLATIN
     Indication: RECTOSIGMOID CANCER
     Dosage: 65 MG/M2, Q2WEEKS
     Route: 041
     Dates: start: 20170809, end: 20171122
  16. PANITUMUMAB [Suspect]
     Active Substance: PANITUMUMAB
     Indication: COLON CANCER
     Dosage: 390 MG, Q2WK
     Route: 041
     Dates: start: 20161116, end: 20170215
  17. PANITUMUMAB [Suspect]
     Active Substance: PANITUMUMAB
     Dosage: 3.6 MG/KG, UNK
     Route: 041
     Dates: start: 20170419, end: 20170628
  18. FLUOROURACIL. [Concomitant]
     Active Substance: FLUOROURACIL
     Indication: RECTOSIGMOID CANCER
     Dosage: 4200 MG, Q2WK
     Route: 041
     Dates: start: 20161116, end: 20170315

REACTIONS (6)
  - Hypomagnesaemia [Recovered/Resolved]
  - Stomatitis [Unknown]
  - Interstitial lung disease [Not Recovered/Not Resolved]
  - Dermatitis acneiform [Unknown]
  - Neutrophil count decreased [Recovered/Resolved]
  - Neuropathy peripheral [Unknown]

NARRATIVE: CASE EVENT DATE: 20171213
